FAERS Safety Report 18683034 (Version 2)
Quarter: 2022Q1

REPORT INFORMATION
  Report Type: Spontaneous
  Country: US (occurrence: US)
  Receive Date: 20201230
  Receipt Date: 20220322
  Transmission Date: 20220423
  Serious: Yes (Hospitalization)
  Sender: FDA-Public Use
  Company Number: US-SAMSUNG-SB-2020-38144

PATIENT
  Age: 51 Year
  Sex: Male

DRUGS (2)
  1. INFLIXIMAB [Suspect]
     Active Substance: INFLIXIMAB
     Indication: Colitis
     Dosage: UNKNOWN
     Route: 065
  2. TALIMOGENE LAHERPAREPVEC [Concomitant]
     Active Substance: TALIMOGENE LAHERPAREPVEC
     Indication: Lymphadenopathy
     Dosage: UNKNOWN
     Route: 065

REACTIONS (4)
  - Vanishing bile duct syndrome [Unknown]
  - Cytomegalovirus colitis [Recovered/Resolved]
  - Drug-induced liver injury [Unknown]
  - Off label use [Unknown]
